FAERS Safety Report 23136775 (Version 1)
Quarter: 2023Q4

REPORT INFORMATION
  Report Type: Spontaneous
  Country: BR (occurrence: BR)
  Receive Date: 20231102
  Receipt Date: 20231102
  Transmission Date: 20240110
  Serious: Yes (Other)
  Sender: FDA-Public Use
  Company Number: BR-GLAXOSMITHKLINE-BR2023AMR129897

PATIENT

DRUGS (1)
  1. FLUTICASONE FUROATE [Suspect]
     Active Substance: FLUTICASONE FUROATE
     Indication: Product used for unknown indication
     Dosage: 2 PUFF(S), BID, 27.5 MCGX120D CC
     Dates: start: 20230916

REACTIONS (3)
  - Surgery [Unknown]
  - Product complaint [Unknown]
  - Inappropriate schedule of product administration [Unknown]
